FAERS Safety Report 25371671 (Version 3)
Quarter: 2025Q3

REPORT INFORMATION
  Report Type: Spontaneous
  Country: US (occurrence: US)
  Receive Date: 20250529
  Receipt Date: 20250725
  Transmission Date: 20251021
  Serious: No
  Sender: IPSEN BIOPHARMACEUTICALS, INC.
  Company Number: US-IPSEN Group, Research and Development-2025-12627

PATIENT
  Age: 75 Year
  Sex: Female
  Weight: 66 kg

DRUGS (15)
  1. IQIRVO [Suspect]
     Active Substance: ELAFIBRANOR
     Indication: Primary biliary cholangitis
     Dosage: 80 MG BY MOUTH DAILY
     Dates: start: 20250421, end: 20250430
  2. ALBUTEROL [Concomitant]
     Active Substance: ALBUTEROL
     Dosage: INHALE 2 PUFFS PO TID
  3. AMLODIPINE [Concomitant]
     Active Substance: AMLODIPINE BESYLATE
     Dosage: TAKE 1 TABLET (5 MG TOTAL) BY MOUTH DAILY
  4. CETIRIZINE HYDROCHLORIDE [Concomitant]
     Active Substance: CETIRIZINE HYDROCHLORIDE
  5. CITALOPRAM [Concomitant]
     Active Substance: CITALOPRAM
     Dosage: 20 MG, TAKE 1 TABLET BY MOUTH EVERYDAY AT BEDTIME
  6. DICYCLOMINE [Concomitant]
     Active Substance: DICYCLOMINE HYDROCHLORIDE
     Dosage: TAKE 1 TABLET (20 MG TOTAL) BY MOUTH FOUR TIMES DAILY AS NEEDED
  7. FLUTICASONE [Concomitant]
     Active Substance: FLUTICASONE
  8. FLUTICASONE [Concomitant]
     Active Substance: FLUTICASONE
     Dosage: FLUTICASONE VILANTEROL 100-25 MCG/ ACT INHALER, INHALE 1 PUFF DAILY
  9. IPRATROPIUM [Concomitant]
     Active Substance: IPRATROPIUM
  10. LEVOTHYROXINE [Concomitant]
     Active Substance: LEVOTHYROXINE
     Dosage: TAKE 1 TABLET (125 MCG TOTAL) BY MOUTH DAILY
  11. MONTELUKAST [Concomitant]
     Active Substance: MONTELUKAST
     Dosage: TAKE 1 TABLET (10 MG TOTAL) BY MOUTH EVERY EVENING
  12. OLOPATADINE [Concomitant]
     Active Substance: OLOPATADINE
     Dosage: OLOPATADINE 0.2 % OPTHALMIC SOLUTION, INSTILL 1 DROP INTO BOTH EYES EVERY DAY
  13. ROSUVASTATIN [Concomitant]
     Active Substance: ROSUVASTATIN
     Dosage: TAKE 1 TABLET (10 MG TOTAL) BY MOUTH AT BEDTIME.
  14. SELADELPAR LYSINE [Concomitant]
     Active Substance: SELADELPAR LYSINE
     Dosage: TAKE 10 MG CAPSULE BY MOUTH DAILY.
  15. OMEPRAZOLE [Concomitant]
     Active Substance: OMEPRAZOLE
     Dosage: TAKE 1 CAPSULE (40 MG TOTAL )BY MOUTH TWO TIMES DAILY.

REACTIONS (1)
  - Dizziness [Recovered/Resolved]

NARRATIVE: CASE EVENT DATE: 20250422
